FAERS Safety Report 13455073 (Version 1)
Quarter: 2017Q2

REPORT INFORMATION
  Report Type: Report from Study
  Country: DE (occurrence: DE)
  Receive Date: 20170419
  Receipt Date: 20170419
  Transmission Date: 20170830
  Serious: Yes (Hospitalization)
  Sender: FDA-Public Use
  Company Number: DE-ROCHE-1589386

PATIENT
  Age: 29 Year
  Sex: Female
  Weight: 110 kg

DRUGS (35)
  1. OCRELIZUMAB [Suspect]
     Active Substance: OCRELIZUMAB
     Dosage: OLE WEEK 48
     Route: 042
     Dates: start: 20150824, end: 20150824
  2. METHYLPREDNISOLONE. [Concomitant]
     Active Substance: METHYLPREDNISOLONE
     Dosage: 10/MAR/2014-14/MAR/2014, 31/MAR/2014- 04/APR/2014
     Route: 065
     Dates: start: 201109, end: 20110921
  3. IBUPROFEN. [Concomitant]
     Active Substance: IBUPROFEN
     Route: 065
     Dates: start: 20150530, end: 20150531
  4. VENLAFAXINE [Concomitant]
     Active Substance: VENLAFAXINE HYDROCHLORIDE
     Route: 065
     Dates: start: 20141110, end: 20150415
  5. IBUPROFEN. [Concomitant]
     Active Substance: IBUPROFEN
     Route: 065
     Dates: start: 20120919
  6. MUCOSOLVAN [Concomitant]
     Active Substance: AMBROXOL HYDROCHLORIDE
     Route: 065
     Dates: start: 20121227, end: 20121229
  7. OCRELIZUMAB [Suspect]
     Active Substance: OCRELIZUMAB
     Dosage: WEEK 72
     Route: 042
     Dates: start: 20140219, end: 20140219
  8. PLACEBO [Suspect]
     Active Substance: UNSPECIFIED INGREDIENT
     Indication: MULTIPLE SCLEROSIS RELAPSE
     Route: 058
     Dates: start: 20121004
  9. METHYLPREDNISOLONE. [Concomitant]
     Active Substance: METHYLPREDNISOLONE
     Dosage: SUBSEQUENTLY ON 18/OCT/2012, 25/MAR/2013, 27/AUG/2013, 28/AUG/2013, 30/AUG/2013, 19/FEB/2014, 14/AUG
     Route: 065
     Dates: start: 20121004
  10. AMOXICILLIN. [Concomitant]
     Active Substance: AMOXICILLIN
     Route: 065
     Dates: start: 20130831, end: 20130906
  11. OCRELIZUMAB [Suspect]
     Active Substance: OCRELIZUMAB
     Indication: MULTIPLE SCLEROSIS RELAPSE
     Dosage: WEEK 1
     Route: 042
     Dates: start: 20121004, end: 20121004
  12. OCRELIZUMAB [Suspect]
     Active Substance: OCRELIZUMAB
     Dosage: WEEK 2
     Route: 042
     Dates: start: 20121018, end: 20121018
  13. OCRELIZUMAB [Suspect]
     Active Substance: OCRELIZUMAB
     Dosage: WEEK 24
     Route: 042
     Dates: start: 20130325, end: 20130325
  14. OCRELIZUMAB [Suspect]
     Active Substance: OCRELIZUMAB
     Dosage: OLE WEEK 2
     Route: 042
     Dates: start: 20140828, end: 20140828
  15. AERIUS (GERMANY) [Concomitant]
     Dosage: SUSEQUENTLY ON 04/OCT/2012, 17/OCT/2012, 18/OCT/2012, 19/OCT/2012, 24/MAR/2013, 25/MAR/2013, 26/MAR/
     Route: 065
     Dates: start: 20121003
  16. RANITIDIN [Concomitant]
     Active Substance: RANITIDINE HYDROCHLORIDE
     Dosage: SUSEQUENTLY ON 04/OCT/2012, 17/OCT/2012, 18/OCT/2012, 19/OCT/2012, 24/MAR/2013, 25/MAR/2013, 26/AUG/
     Route: 065
     Dates: start: 20121003
  17. DOLORMIN EXTRA [Concomitant]
     Active Substance: IBUPROFEN
     Route: 065
     Dates: start: 20121016, end: 20121016
  18. DOLORMIN EXTRA [Concomitant]
     Active Substance: IBUPROFEN
     Route: 065
     Dates: start: 20130101, end: 20130103
  19. OCRELIZUMAB [Suspect]
     Active Substance: OCRELIZUMAB
     Dosage: WEEK 48
     Route: 042
     Dates: start: 20130827, end: 20130827
  20. OCRELIZUMAB [Suspect]
     Active Substance: OCRELIZUMAB
     Indication: MULTIPLE SCLEROSIS RELAPSE
     Dosage: OLE WEEK 0
     Route: 042
     Dates: start: 20140814, end: 20140814
  21. IBUPROFEN. [Concomitant]
     Active Substance: IBUPROFEN
     Route: 065
     Dates: start: 20121209, end: 20121212
  22. IBUPROFEN. [Concomitant]
     Active Substance: IBUPROFEN
     Route: 065
     Dates: start: 20121227, end: 20121229
  23. TAVOR (LORAZEPAM) [Concomitant]
     Active Substance: LORAZEPAM
     Route: 065
     Dates: start: 20121014, end: 20121014
  24. NARATRIPTAN [Concomitant]
     Active Substance: NARATRIPTAN HYDROCHLORIDE
     Route: 065
     Dates: start: 20130103, end: 20130104
  25. METOHEXAL (METOPROLOL SUCCINATE) [Concomitant]
     Route: 065
     Dates: start: 20140402, end: 20140603
  26. OPIPRAMOL [Concomitant]
     Active Substance: OPIPRAMOL
     Indication: ANXIETY
     Route: 065
     Dates: start: 201409
  27. IBUPROFEN. [Concomitant]
     Active Substance: IBUPROFEN
     Route: 065
     Dates: start: 20121004, end: 20121005
  28. CIPRALEX [Concomitant]
     Active Substance: ESCITALOPRAM OXALATE
     Route: 065
     Dates: start: 20130619, end: 20140531
  29. CIPRAMIL [Concomitant]
     Active Substance: CITALOPRAM HYDROBROMIDE
     Indication: ANXIETY
     Route: 065
     Dates: start: 201110, end: 20121109
  30. CIPRAMIL [Concomitant]
     Active Substance: CITALOPRAM HYDROBROMIDE
     Route: 065
     Dates: start: 20121110, end: 20140531
  31. OPIPRAMOL [Concomitant]
     Active Substance: OPIPRAMOL
     Route: 065
     Dates: start: 201205
  32. CLARITHROMYCIN. [Concomitant]
     Active Substance: CLARITHROMYCIN
     Route: 065
     Dates: start: 20140528, end: 20140602
  33. PLACEBO [Suspect]
     Active Substance: UNSPECIFIED INGREDIENT
     Route: 058
     Dates: start: 20140806, end: 20140813
  34. OCRELIZUMAB [Suspect]
     Active Substance: OCRELIZUMAB
     Dosage: OLE WEEK 24
     Route: 042
     Dates: start: 20150203, end: 20150203
  35. AERIUS [Concomitant]
     Active Substance: DESLORATADINE
     Dosage: SUBSEQUENTLY ON 14/AUG/2014
     Route: 065
     Dates: start: 20140813

REACTIONS (1)
  - Anal abscess [Recovered/Resolved]

NARRATIVE: CASE EVENT DATE: 20150530
